FAERS Safety Report 5062170-4 (Version None)
Quarter: 2006Q3

REPORT INFORMATION
  Report Type: 
  Country: None (occurrence: None)
  Receive Date: 20060726
  Receipt Date: 20060601
  Transmission Date: 20061208
  Serious: Yes (Life-Threatening, Hospitalization)
  Sender: FDA-Public Use
  Company Number: 2006GB00980

PATIENT
  Age: 28475 Day
  Sex: Male

DRUGS (15)
  1. PROPOFOL [Suspect]
     Indication: ANAESTHESIA
     Route: 042
     Dates: start: 20060516, end: 20060516
  2. ALFENTANIL [Suspect]
     Indication: ANAESTHESIA
     Route: 042
     Dates: start: 20060516, end: 20060516
  3. CRESTOR [Suspect]
     Indication: RENAL FAILURE CHRONIC
     Route: 048
     Dates: start: 20040924
  4. FUROSEMIDE [Concomitant]
     Indication: FLUID OVERLOAD
     Dosage: STARTED }12 MONTHS PRIOR TO STUDY START
     Route: 048
  5. CALCICHEW [Concomitant]
     Indication: BLOOD PHOSPHORUS ABNORMAL
     Route: 048
     Dates: start: 20040405
  6. ASCORBIC ACID [Concomitant]
     Indication: VITAMIN SUPPLEMENTATION
     Route: 048
     Dates: start: 20040405
  7. FOLIC ACID [Concomitant]
     Indication: VITAMIN SUPPLEMENTATION
     Route: 048
     Dates: start: 20040405
  8. VITAMIN B COMPOUND STRONG [Concomitant]
     Indication: VITAMIN SUPPLEMENTATION
     Route: 048
     Dates: start: 20040405
  9. ERYTHROPOIETIN BETA [Concomitant]
     Indication: NEPHROGENIC ANAEMIA
     Route: 058
     Dates: start: 20040421
  10. VITAMIN B-12 [Concomitant]
     Indication: VITAMIN SUPPLEMENTATION
     Route: 030
     Dates: start: 20040803
  11. ACETAMINOPHEN [Concomitant]
     Indication: PAIN
     Dosage: STARTED }12 MONTHS PRIOR TO STUDY START
     Route: 048
  12. ALFACALCIDOL [Concomitant]
     Indication: HYPERPARATHYROIDISM
     Route: 048
     Dates: start: 20041006
  13. ASPIRIN [Concomitant]
     Indication: PROPHYLAXIS
     Route: 048
     Dates: start: 20050302
  14. ATENOLOL [Concomitant]
     Indication: PALPITATIONS
     Route: 048
     Dates: start: 20051011
  15. VECURONIUM BROMIDE [Concomitant]
     Indication: ANAESTHESIA
     Route: 042
     Dates: start: 20060516, end: 20060516

REACTIONS (3)
  - ACUTE CORONARY SYNDROME [None]
  - ATRIAL FIBRILLATION [None]
  - PROCEDURAL HYPOTENSION [None]
